FAERS Safety Report 21074657 (Version 1)
Quarter: 2022Q3

REPORT INFORMATION
  Report Type: Report from Study
  Country: US (occurrence: US)
  Receive Date: 20220713
  Receipt Date: 20220713
  Transmission Date: 20221027
  Serious: Yes (Other)
  Sender: FDA-Public Use
  Company Number: US-ABBVIE-22K-163-4463693-00

PATIENT
  Sex: Female

DRUGS (1)
  1. HUMIRA [Suspect]
     Active Substance: ADALIMUMAB
     Indication: Colitis ulcerative
     Route: 058
     Dates: start: 20210522, end: 202205

REACTIONS (4)
  - Systemic lupus erythematosus [Recovered/Resolved]
  - Joint swelling [Unknown]
  - Arthritis [Unknown]
  - Colitis ulcerative [Unknown]
